FAERS Safety Report 17009528 (Version 1)
Quarter: 2019Q4

REPORT INFORMATION
  Report Type: Spontaneous
  Country: CA (occurrence: CA)
  Receive Date: 20191108
  Receipt Date: 20191108
  Transmission Date: 20200122
  Serious: Yes (Disabling, Other)
  Sender: FDA-Public Use
  Company Number: CA-PFIZER INC-2019481427

PATIENT
  Age: 68 Year
  Sex: Male
  Weight: 90.7 kg

DRUGS (3)
  1. INSULIN [Concomitant]
     Active Substance: INSULIN NOS
     Dosage: UNK
  2. GABAPENTIN. [Suspect]
     Active Substance: GABAPENTIN
     Indication: WOUND COMPLICATION
     Dosage: 1 UNK, 2X/DAY
     Route: 048
  3. OXYCONTIN [Suspect]
     Active Substance: OXYCODONE HYDROCHLORIDE
     Indication: WOUND COMPLICATION
     Dosage: 1 UNK, 2X/DAY
     Route: 048

REACTIONS (3)
  - Head injury [Recovering/Resolving]
  - Haemorrhage [Recovering/Resolving]
  - Loss of consciousness [Recovering/Resolving]
